FAERS Safety Report 20931151 (Version 1)
Quarter: 2022Q2

REPORT INFORMATION
  Report Type: Report from Study
  Country: PL (occurrence: None)
  Receive Date: 20220608
  Receipt Date: 20220608
  Transmission Date: 20220720
  Serious: Yes (Life-Threatening, Hospitalization)
  Sender: FDA-Public Use
  Company Number: PL-ROCHE-2716371

PATIENT
  Age: 55 Year
  Sex: Male
  Weight: 90 kg

DRUGS (10)
  1. RITUXIMAB [Suspect]
     Active Substance: RITUXIMAB
     Indication: Mantle cell lymphoma
     Dosage: LAST DOSE OF RITUXIMAB ADMINISTERED BEFORE SERIOUS ADVERSE EVENT (1400 MG) ON 21/AUG/2020
     Route: 058
     Dates: start: 20150708
  2. LENALIDOMIDE [Suspect]
     Active Substance: LENALIDOMIDE
     Indication: Mantle cell lymphoma
     Route: 065
     Dates: start: 20180708, end: 20201009
  3. ACYCLOVIR [Concomitant]
     Active Substance: ACYCLOVIR
     Indication: Antiviral prophylaxis
     Dates: start: 20181127
  4. BISEPTOL [Concomitant]
     Active Substance: SULFAMETHOXAZOLE\TRIMETHOPRIM
     Indication: Antifungal prophylaxis
     Dates: start: 20181121
  5. UPROX [Concomitant]
     Indication: Benign prostatic hyperplasia
  6. CYCLOPHOSPHAMIDE [Concomitant]
     Active Substance: CYCLOPHOSPHAMIDE
     Indication: Mantle cell lymphoma
     Dates: start: 20181127, end: 20190417
  7. DOXORUBICIN [Concomitant]
     Active Substance: DOXORUBICIN
     Indication: Mantle cell lymphoma
     Dates: start: 20181127, end: 20190417
  8. VINCRISTINE [Concomitant]
     Active Substance: VINCRISTINE
     Indication: Mantle cell lymphoma
     Dates: start: 20181127, end: 20190417
  9. PREDNISONE [Concomitant]
     Active Substance: PREDNISONE
     Indication: Mantle cell lymphoma
     Dates: start: 20181127, end: 20190417
  10. CYTARABINE [Concomitant]
     Active Substance: CYTARABINE
     Indication: Mantle cell lymphoma
     Dates: start: 20181127, end: 20190417

REACTIONS (1)
  - COVID-19 [Recovered/Resolved]

NARRATIVE: CASE EVENT DATE: 20201112
